FAERS Safety Report 5083666-5 (Version None)
Quarter: 2006Q3

REPORT INFORMATION
  Report Type: 
  Country: None (occurrence: None)
  Receive Date: 20060818
  Receipt Date: 20060809
  Transmission Date: 20061208
  Serious: Yes (Death, Life-Threatening)
  Sender: FDA-Public Use
  Company Number: FR-SANOFI-SYNTHELABO-A02200602028

PATIENT
  Age: 61 Year
  Sex: Male

DRUGS (9)
  1. PIASCLEDINE [Concomitant]
     Indication: DRUG USE FOR UNKNOWN INDICATION
     Dosage: UNK
     Route: 048
     Dates: start: 20060426
  2. TANAKAN [Suspect]
     Indication: DRUG USE FOR UNKNOWN INDICATION
     Dosage: 120 MG
     Route: 048
     Dates: start: 20060426
  3. RISPERDAL [Suspect]
     Indication: BIPOLAR I DISORDER
     Route: 048
     Dates: start: 20060419, end: 20060602
  4. RISPERDAL [Suspect]
     Route: 048
     Dates: start: 20060603, end: 20060618
  5. RISPERDAL [Suspect]
     Route: 048
     Dates: start: 20060619
  6. RIVOTRIL [Suspect]
     Indication: DRUG USE FOR UNKNOWN INDICATION
     Route: 048
     Dates: start: 20060419
  7. RISPERDAL CONSTA  LP [Suspect]
     Indication: BIPOLAR I DISORDER
     Dosage: 1 VIAL NOS EVERY TWO WEEKS
     Route: 030
     Dates: start: 20060510
  8. NOCTAMIDE [Suspect]
     Route: 048
     Dates: start: 20060603
  9. STILNOX [Suspect]
     Indication: DRUG USE FOR UNKNOWN INDICATION
     Dosage: UNK
     Route: 048
     Dates: start: 20060603

REACTIONS (2)
  - CARDIO-RESPIRATORY ARREST [None]
  - SUDDEN DEATH [None]
